FAERS Safety Report 6915569-2 (Version None)
Quarter: 2010Q3

REPORT INFORMATION
  Report Type: 
  Country: None (occurrence: None)
  Receive Date: 20100804
  Receipt Date: 20100728
  Transmission Date: 20110219
  Serious: Yes (Other)
  Sender: FDA-Public Use
  Company Number: 2010SP028687

PATIENT
  Age: 53 Year
  Sex: Female
  Weight: 70 kg

DRUGS (1)
  1. AERIUS (DESLORATADINE /0139801/) [Suspect]
     Indication: NASAL CONGESTION
     Dosage: 5 MG; PO
     Route: 048

REACTIONS (4)
  - DYSGEUSIA [None]
  - NO REACTION ON PREVIOUS EXPOSURE TO DRUG [None]
  - PRODUCT QUALITY ISSUE [None]
  - THROAT IRRITATION [None]
